FAERS Safety Report 10799861 (Version 1)
Quarter: 2015Q1

REPORT INFORMATION
  Report Type: Spontaneous
  Country: US (occurrence: US)
  Receive Date: 20150216
  Receipt Date: 20150216
  Transmission Date: 20150721
  Serious: No
  Sender: FDA-Public Use
  Company Number: US-ALLERGAN-1418231US

PATIENT
  Age: 66 Year
  Sex: Female

DRUGS (3)
  1. RESTASIS [Suspect]
     Active Substance: CYCLOSPORINE
     Indication: EYE INFLAMMATION
     Dosage: 2 GTT, BID
     Route: 047
  2. RESTASIS [Suspect]
     Active Substance: CYCLOSPORINE
     Indication: VISION BLURRED
  3. RESTASIS [Suspect]
     Active Substance: CYCLOSPORINE
     Indication: DRY EYE

REACTIONS (5)
  - Corneal abrasion [Recovering/Resolving]
  - Eye discharge [Recovering/Resolving]
  - Eye pain [Not Recovered/Not Resolved]
  - Ocular hyperaemia [Recovering/Resolving]
  - Off label use [Unknown]
